FAERS Safety Report 18112513 (Version 2)
Quarter: 2020Q4

REPORT INFORMATION
  Report Type: Report from Study
  Country: MX (occurrence: MX)
  Receive Date: 20200805
  Receipt Date: 20201015
  Transmission Date: 20210113
  Serious: Yes (Death, Hospitalization, Other)
  Sender: FDA-Public Use
  Company Number: MX-BRISTOL-MYERS SQUIBB COMPANY-BMS-2020-032123

PATIENT
  Age: 43 Year
  Sex: Female

DRUGS (2)
  1. DASATINIB. [Suspect]
     Active Substance: DASATINIB
     Dosage: 50 MILLIGRAM, QD
  2. DASATINIB. [Suspect]
     Active Substance: DASATINIB
     Indication: CHRONIC MYELOID LEUKAEMIA
     Dosage: 100 MILLIGRAM, QD
     Route: 048
     Dates: start: 20200107

REACTIONS (9)
  - Vomiting [Recovering/Resolving]
  - Inflammation [Recovering/Resolving]
  - Splenomegaly [Recovering/Resolving]
  - Pulmonary haemorrhage [Fatal]
  - Dehydration [Recovering/Resolving]
  - Thrombocytopenia [Recovering/Resolving]
  - Malignant neoplasm progression [Recovering/Resolving]
  - Leukocytosis [Recovering/Resolving]
  - Contusion [Unknown]

NARRATIVE: CASE EVENT DATE: 20200408
